FAERS Safety Report 12951830 (Version 2)
Quarter: 2016Q4

REPORT INFORMATION
  Report Type: Report from Study
  Country: US (occurrence: US)
  Receive Date: 20161117
  Receipt Date: 20161231
  Transmission Date: 20170207
  Serious: Yes (Death)
  Sender: FDA-Public Use
  Company Number: US-ASTRAZENECA-2016SF21447

PATIENT
  Age: 23519 Day
  Sex: Male

DRUGS (17)
  1. SAVAYSA [Concomitant]
     Active Substance: EDOXABAN TOSYLATE
     Indication: COAGULOPATHY
     Route: 048
     Dates: start: 2015
  2. VITAMIN D3 [Concomitant]
     Active Substance: CHOLECALCIFEROL
     Indication: GENERAL PHYSICAL HEALTH DETERIORATION
     Route: 048
     Dates: start: 2012
  3. METFORMIN [Concomitant]
     Active Substance: METFORMIN HYDROCHLORIDE
     Indication: TYPE 2 DIABETES MELLITUS
     Route: 048
     Dates: start: 2011
  4. ATORVASTATIN [Concomitant]
     Active Substance: ATORVASTATIN
     Indication: ARTERIOSCLEROSIS
     Route: 048
     Dates: start: 2015
  5. COENZYME Q10 [Concomitant]
     Active Substance: UBIDECARENONE
     Indication: GENERAL PHYSICAL HEALTH DETERIORATION
     Route: 048
     Dates: start: 2006
  6. CYANOCOBALAMIN B12 [Concomitant]
     Indication: GENERAL PHYSICAL HEALTH DETERIORATION
     Route: 030
     Dates: start: 2012
  7. ACLIDINIUM BROMIDE [Suspect]
     Active Substance: ACLIDINIUM BROMIDE
     Indication: CHRONIC OBSTRUCTIVE PULMONARY DISEASE
     Route: 055
     Dates: start: 20160712, end: 20161002
  8. METOPROLOL. [Concomitant]
     Active Substance: METOPROLOL
     Indication: HYPERTENSION
     Route: 048
     Dates: start: 2006
  9. LOSARTAN. [Concomitant]
     Active Substance: LOSARTAN
     Indication: HYPERTENSION
     Route: 048
     Dates: start: 2012
  10. DIGOXIN. [Concomitant]
     Active Substance: DIGOXIN
     Indication: ATRIAL FLUTTER
     Route: 048
     Dates: start: 2013
  11. TESTOSTERONE CYPPIONATE [Concomitant]
     Indication: BLOOD TESTOSTERONE DECREASED
     Route: 030
     Dates: start: 2011
  12. ACLIDINIUM BROMIDE [Suspect]
     Active Substance: ACLIDINIUM BROMIDE
     Indication: CHRONIC OBSTRUCTIVE PULMONARY DISEASE
     Route: 055
     Dates: start: 20160421, end: 20160711
  13. ACLIDINIUM BROMIDE [Suspect]
     Active Substance: ACLIDINIUM BROMIDE
     Indication: CHRONIC OBSTRUCTIVE PULMONARY DISEASE
     Route: 055
     Dates: start: 20161003
  14. DHEA [Concomitant]
     Active Substance: PRASTERONE
     Indication: GENERAL PHYSICAL HEALTH DETERIORATION
     Route: 048
     Dates: start: 2012
  15. ASPIRIN. [Concomitant]
     Active Substance: ASPIRIN
     Indication: CARDIAC DISORDER
     Route: 048
     Dates: start: 2006
  16. AMIODARONE HYDROCHLORIDE. [Concomitant]
     Active Substance: AMIODARONE HYDROCHLORIDE
     Indication: ATRIAL FLUTTER
     Route: 048
     Dates: start: 2013
  17. ACLIDINIUM BROMIDE [Suspect]
     Active Substance: ACLIDINIUM BROMIDE
     Indication: CHRONIC OBSTRUCTIVE PULMONARY DISEASE
     Route: 055
     Dates: start: 20151228, end: 20160420

REACTIONS (1)
  - Pulmonary embolism [Fatal]

NARRATIVE: CASE EVENT DATE: 20161110
